FAERS Safety Report 4402671-2 (Version None)
Quarter: 2004Q3

REPORT INFORMATION
  Report Type: 
  Country: None (occurrence: None)
  Receive Date: 20040721
  Receipt Date: 20040709
  Transmission Date: 20050211
  Serious: Yes (Other)
  Sender: FDA-Public Use
  Company Number: FR-BRISTOL-MYERS SQUIBB COMPANY-12636494

PATIENT
  Age: 34 Year
  Sex: Male

DRUGS (6)
  1. REYATAZ [Suspect]
     Indication: HIV INFECTION
     Dosage: ONCE DAILY
     Route: 048
     Dates: start: 20040601
  2. VIDEX [Concomitant]
     Indication: HIV INFECTION
  3. NORVIR [Concomitant]
     Indication: HIV INFECTION
     Dosage: ONCE DAILY
  4. VIREAD [Concomitant]
     Indication: HIV INFECTION
  5. AMBISOME [Concomitant]
     Indication: VISCERAL LEISHMANIASIS
  6. IMOVANE [Concomitant]
     Indication: INSOMNIA

REACTIONS (1)
  - HEPATITIS CHOLESTATIC [None]
